FAERS Safety Report 5468930-X (Version None)
Quarter: 2007Q3

REPORT INFORMATION
  Report Type: 
  Country: None (occurrence: None)
  Receive Date: 20070926
  Receipt Date: 20070921
  Transmission Date: 20080115
  Serious: Yes (Hospitalization, Other)
  Sender: FDA-Public Use
  Company Number: US-MERCK-0707USA04754

PATIENT
  Age: 82 Year
  Sex: Male

DRUGS (3)
  1. FOSAMAX [Suspect]
     Indication: OSTEOPOROSIS
     Route: 048
     Dates: start: 20020115, end: 20051001
  2. FOSAMAX [Suspect]
     Route: 048
     Dates: start: 20051001
  3. PACERONE [Concomitant]
     Indication: HEART RATE IRREGULAR
     Route: 065
     Dates: start: 20010101, end: 20061001

REACTIONS (6)
  - BASAL CELL CARCINOMA [None]
  - OSTEOMYELITIS [None]
  - OSTEONECROSIS [None]
  - PELVIC FRACTURE [None]
  - PNEUMONIA [None]
  - SQUAMOUS CELL CARCINOMA OF SKIN [None]
